FAERS Safety Report 15388660 (Version 1)
Quarter: 2018Q4

REPORT INFORMATION
  Report Type: Spontaneous
  Country: US (occurrence: US)
  Receive Date: 20180916
  Receipt Date: 20180916
  Transmission Date: 20190204
  Serious: No
  Sender: FDA-Public Use
  Company Number: US-JNJFOC-20180832643

PATIENT
  Age: 85 Year
  Sex: Male
  Weight: 70.76 kg

DRUGS (2)
  1. TYLENOL EXTRA STRENGTH [Suspect]
     Active Substance: ACETAMINOPHEN
     Indication: MUSCLE STRAIN
     Dosage: 8AM, 2PM, 7:30AM THE NEXT DAY
     Route: 048
     Dates: start: 20180820, end: 20180821
  2. TYLENOL EXTRA STRENGTH [Suspect]
     Active Substance: ACETAMINOPHEN
     Indication: PAIN IN EXTREMITY
     Dosage: 8AM, 2PM, 7:30AM THE NEXT DAY
     Route: 048
     Dates: start: 20180820, end: 20180821

REACTIONS (1)
  - Drug ineffective [Unknown]

NARRATIVE: CASE EVENT DATE: 20180821
